FAERS Safety Report 9059971 (Version 1)
Quarter: 2013Q1

REPORT INFORMATION
  Report Type: Spontaneous
  Country: US (occurrence: None)
  Receive Date: 20130118
  Receipt Date: 20130118
  Transmission Date: 20140127
  Serious: Yes (Death)
  Sender: FDA-Public Use
  Company Number: 2013POI057300001

PATIENT
  Age: 37 Year
  Sex: Female

DRUGS (5)
  1. VENLAFAXINE [Suspect]
     Route: 048
     Dates: end: 2011
  2. LAMOTRIGINE [Suspect]
     Route: 048
     Dates: end: 2011
  3. TRAZODONE [Suspect]
     Route: 048
     Dates: end: 2011
  4. ETHANOL [Suspect]
     Route: 048
     Dates: end: 2011
  5. PROPRANOLOL [Suspect]
     Route: 048
     Dates: end: 2011

REACTIONS (2)
  - Respiratory arrest [None]
  - Cardiac arrest [None]
